FAERS Safety Report 5371709-0 (Version None)
Quarter: 2007Q2

REPORT INFORMATION
  Report Type: 
  Country: None (occurrence: None)
  Receive Date: 20070627
  Receipt Date: 20070625
  Transmission Date: 20071010
  Serious: Yes (Life-Threatening)
  Sender: FDA-Public Use
  Company Number: JP-BAYER-200710387BYL

PATIENT
  Sex: Male
  Weight: 51 kg

DRUGS (7)
  1. ADALAT [Suspect]
     Indication: HYPERTENSION
     Dosage: TOTAL DAILY DOSE: 20 MG  UNIT DOSE: 10 MG
     Route: 048
     Dates: end: 20070529
  2. CYANAMIDE [Suspect]
     Indication: ALCOHOLISM
     Route: 048
     Dates: start: 20070425, end: 20070521
  3. HALCION [Suspect]
     Indication: INSOMNIA
     Dosage: TOTAL DAILY DOSE: 0.25 G
     Route: 048
     Dates: end: 20070529
  4. PREDONINE [Concomitant]
     Dosage: TOTAL DAILY DOSE: 20 MG
     Route: 048
     Dates: start: 20070525, end: 20070528
  5. PREDONINE [Concomitant]
     Dosage: TOTAL DAILY DOSE: 50 MG
     Route: 048
     Dates: start: 20070602
  6. PREDONINE [Concomitant]
     Dosage: TOTAL DAILY DOSE: 55 MG
     Route: 048
     Dates: start: 20070529, end: 20070529
  7. SOL-MELCORT [Concomitant]
     Dosage: TOTAL DAILY DOSE: 1000 MG
     Route: 041
     Dates: start: 20070530, end: 20070601

REACTIONS (7)
  - BLISTER [None]
  - ERYTHEMA [None]
  - LIP EROSION [None]
  - OCULAR HYPERAEMIA [None]
  - PYREXIA [None]
  - SKIN EROSION [None]
  - TOXIC EPIDERMAL NECROLYSIS [None]
